FAERS Safety Report 8701519 (Version 2)
Quarter: 2013Q2

REPORT INFORMATION
  Report Type: Spontaneous
  Country: US (occurrence: US)
  Receive Date: 20120802
  Receipt Date: 20130506
  Transmission Date: 20140414
  Serious: Yes (Other)
  Sender: FDA-Public Use
  Company Number: US-AMGEN-USASP2012047466

PATIENT
  Age: 83 Year
  Sex: Female

DRUGS (11)
  1. PROLIA [Suspect]
     Indication: OSTEOPOROSIS POSTMENOPAUSAL
     Dosage: 60 MG, Q6MO
     Dates: start: 20111116
  2. PROLIA [Suspect]
  3. FISH OIL [Concomitant]
  4. MULTIVITAMIN                       /00097801/ [Concomitant]
  5. VANIQA                             /00936001/ [Concomitant]
  6. METROCREAM [Concomitant]
  7. RECLAST [Concomitant]
  8. FOSAMAX [Concomitant]
  9. BONIVA [Concomitant]
  10. PREMPRO [Concomitant]
  11. FORTEO [Concomitant]

REACTIONS (3)
  - Hip fracture [Unknown]
  - Abasia [Not Recovered/Not Resolved]
  - Arthralgia [Not Recovered/Not Resolved]
